FAERS Safety Report 4977682-9 (Version None)
Quarter: 2006Q2

REPORT INFORMATION
  Report Type: 
  Country: None (occurrence: None)
  Receive Date: 20060420
  Receipt Date: 20051021
  Transmission Date: 20061013
  Serious: No
  Sender: FDA-Public Use
  Company Number: US-GLAXOSMITHKLINE-A0579177A

PATIENT
  Age: 53 Year
  Sex: Male

DRUGS (5)
  1. ESKALITH CR [Suspect]
     Indication: DRUG USE FOR UNKNOWN INDICATION
     Dosage: 900MG IN THE MORNING
     Route: 048
  2. CLOZAPINE [Concomitant]
     Dosage: 100MG THREE TIMES PER DAY
  3. ANTABUSE [Concomitant]
  4. ATENOLOL [Concomitant]
  5. MELATONIN [Concomitant]

REACTIONS (2)
  - SLEEP DISORDER [None]
  - SOLILOQUY [None]
